FAERS Safety Report 10558343 (Version 5)
Quarter: 2016Q1

REPORT INFORMATION
  Report Type: Report from Study
  Country: CA (occurrence: CA)
  Receive Date: 20141031
  Receipt Date: 20160218
  Transmission Date: 20160525
  Serious: Yes (Hospitalization, Other)
  Sender: FDA-Public Use
  Company Number: CA-ABBVIE-14P-028-1299788-00

PATIENT
  Age: 49 Year
  Sex: Male
  Weight: 66.1 kg

DRUGS (13)
  1. VITAMIN D [Concomitant]
     Active Substance: CHOLECALCIFEROL
     Indication: PRODUCT USED FOR UNKNOWN INDICATION
  2. GLICLAZIDE [Concomitant]
     Active Substance: GLICLAZIDE
     Indication: PRODUCT USED FOR UNKNOWN INDICATION
  3. DOMPERIDONE [Concomitant]
     Active Substance: DOMPERIDONE
     Indication: PRODUCT USED FOR UNKNOWN INDICATION
     Dosage: 10 MG AT MEALS
  4. HUMIRA [Suspect]
     Active Substance: ADALIMUMAB
     Dosage: WEEK TWO
     Route: 058
  5. FOLIC ACID. [Concomitant]
     Active Substance: FOLIC ACID
     Indication: PRODUCT USED FOR UNKNOWN INDICATION
  6. TECTA [Concomitant]
     Active Substance: PANTOPRAZOLE MAGNESIUM
     Indication: PRODUCT USED FOR UNKNOWN INDICATION
  7. HUMIRA [Suspect]
     Active Substance: ADALIMUMAB
     Indication: ANKYLOSING SPONDYLITIS
     Route: 058
     Dates: start: 20090511, end: 201409
  8. HUMIRA [Suspect]
     Active Substance: ADALIMUMAB
     Route: 058
  9. HUMIRA [Suspect]
     Active Substance: ADALIMUMAB
     Indication: CROHN^S DISEASE
     Route: 058
     Dates: start: 2014, end: 201410
  10. HUMIRA [Suspect]
     Active Substance: ADALIMUMAB
     Dosage: WEEK ONE
     Route: 058
     Dates: start: 20150218, end: 20150218
  11. AZATHIOPRINE. [Concomitant]
     Active Substance: AZATHIOPRINE
     Indication: PRODUCT USED FOR UNKNOWN INDICATION
  12. VITAMIN B12 [Concomitant]
     Active Substance: CYANOCOBALAMIN
     Indication: PRODUCT USED FOR UNKNOWN INDICATION
  13. MICARDIS [Concomitant]
     Active Substance: TELMISARTAN
     Indication: PRODUCT USED FOR UNKNOWN INDICATION

REACTIONS (26)
  - Weight decreased [Unknown]
  - Intestinal stenosis [Unknown]
  - Gastrointestinal anastomotic leak [Recovered/Resolved with Sequelae]
  - Abdominal pain [Unknown]
  - Abdominal distension [Unknown]
  - Gastrointestinal infection [Unknown]
  - Intestinal obstruction [Recovered/Resolved with Sequelae]
  - Nausea [Unknown]
  - Vomiting [Recovered/Resolved]
  - Fistula discharge [Unknown]
  - Gastrointestinal anastomotic leak [Unknown]
  - Crohn^s disease [Unknown]
  - Impaired healing [Unknown]
  - Duodenal perforation [Recovered/Resolved with Sequelae]
  - Abdominal distension [Unknown]
  - Headache [Unknown]
  - Abscess intestinal [Not Recovered/Not Resolved]
  - Drug ineffective [Not Recovered/Not Resolved]
  - Post procedural complication [Not Recovered/Not Resolved]
  - Drug effect incomplete [Not Recovered/Not Resolved]
  - Fistula of small intestine [Unknown]
  - Malaise [Unknown]
  - Scrotal abscess [Not Recovered/Not Resolved]
  - Muscle spasms [Unknown]
  - Intestinal anastomosis complication [Unknown]
  - Abdominal adhesions [Unknown]

NARRATIVE: CASE EVENT DATE: 2014
